FAERS Safety Report 15040953 (Version 1)
Quarter: 2018Q2

REPORT INFORMATION
  Report Type: Report from Study
  Country: JP (occurrence: JP)
  Receive Date: 20180620
  Receipt Date: 20180620
  Transmission Date: 20180711
  Serious: Yes (Other)
  Sender: FDA-Public Use
  Company Number: JP-BEH-2018091770

PATIENT
  Age: 1 Year
  Sex: Male
  Weight: 9.4 kg

DRUGS (7)
  1. IDELVION [Suspect]
     Active Substance: COAGULATION FACTOR IX RECOMBINANT HUMAN
     Dosage: 500 IU, QD
     Route: 042
     Dates: start: 20180205, end: 20180205
  2. IDELVION [Suspect]
     Active Substance: COAGULATION FACTOR IX RECOMBINANT HUMAN
     Dosage: 500 IU, QD
     Route: 042
     Dates: start: 20171213, end: 20171213
  3. IDELVION [Suspect]
     Active Substance: COAGULATION FACTOR IX RECOMBINANT HUMAN
     Dosage: 500 IU, QW
     Route: 042
     Dates: start: 20180209, end: 20180413
  4. IDELVION [Suspect]
     Active Substance: COAGULATION FACTOR IX RECOMBINANT HUMAN
     Dosage: 500 IU, QW
     Route: 042
     Dates: start: 20171110, end: 20171208
  5. IDELVION [Suspect]
     Active Substance: COAGULATION FACTOR IX RECOMBINANT HUMAN
     Dosage: 500 IU, QW
     Route: 042
     Dates: start: 20171215, end: 20180202
  6. IDELVION [Suspect]
     Active Substance: COAGULATION FACTOR IX RECOMBINANT HUMAN
     Indication: FACTOR IX DEFICIENCY
     Dosage: 500 IU, QW
     Route: 042
     Dates: start: 20171020, end: 20171102
  7. IDELVION [Suspect]
     Active Substance: COAGULATION FACTOR IX RECOMBINANT HUMAN
     Indication: HAEMORRHAGE PROPHYLAXIS
     Dosage: 500 IU, QD
     Route: 042
     Dates: start: 20171103, end: 20171103

REACTIONS (5)
  - Bronchiolitis [Unknown]
  - Rhinorrhoea [Unknown]
  - Stomatitis [Unknown]
  - Upper respiratory tract inflammation [Unknown]
  - Asthma [Unknown]
